FAERS Safety Report 12702848 (Version 4)
Quarter: 2016Q4

REPORT INFORMATION
  Report Type: Report from Study
  Country: BR (occurrence: BR)
  Receive Date: 20160831
  Receipt Date: 20161028
  Transmission Date: 20170207
  Serious: Yes (Hospitalization, Other)
  Sender: FDA-Public Use
  Company Number: PHHY2016BR118757

PATIENT
  Sex: Female
  Weight: 48 kg

DRUGS (1)
  1. EXJADE [Suspect]
     Active Substance: DEFERASIROX
     Indication: MYELODYSPLASTIC SYNDROME
     Dosage: 200 MG, QD (4 DF)
     Route: 065

REACTIONS (3)
  - Oedema peripheral [Unknown]
  - Sepsis [Unknown]
  - Bacterial infection [Unknown]
